FAERS Safety Report 22278882 (Version 1)
Quarter: 2023Q2

REPORT INFORMATION
  Report Type: Spontaneous
  Country: US (occurrence: None)
  Receive Date: 20230502
  Receipt Date: 20230502
  Transmission Date: 20230722
  Serious: Yes (Hospitalization)
  Sender: FDA-Public Use
  Company Number: None

PATIENT
  Age: 67 Year
  Sex: Female
  Weight: 88.45 kg

DRUGS (23)
  1. MEKINIST [Suspect]
     Active Substance: TRAMETINIB DIMETHYL SULFOXIDE
     Indication: Retroperitoneal cancer
     Dosage: FREQUENCY : DAILY;?
     Route: 048
  2. AMLODIPINE [Concomitant]
  3. BIOTIN [Concomitant]
  4. CETIRIZINE [Concomitant]
  5. CLONIDINE [Concomitant]
  6. COENZYME Q10 [Concomitant]
     Active Substance: DIETARY SUPPLEMENT\UBIDECARENONE
  7. DRONABINOL [Concomitant]
     Active Substance: DRONABINOL
  8. DIETARY SUPPLEMENT [Concomitant]
     Active Substance: DIETARY SUPPLEMENT
  9. FLUOXETINE [Concomitant]
     Active Substance: FLUOXETINE HYDROCHLORIDE
  10. FOLIC ACID [Concomitant]
  11. GABAPENTIN [Concomitant]
  12. GLUCOSAMINE [Concomitant]
     Active Substance: GLUCOSAMINE
  13. LEVOCARNITINE [Concomitant]
     Active Substance: LEVOCARNITINE
  14. MAGNESIUM [Concomitant]
     Active Substance: MAGNESIUM
  15. MELATONIN [Concomitant]
  16. METAMUCIL [Concomitant]
  17. NIACIN [Concomitant]
  18. ONDANSETRON [Concomitant]
  19. POTASSIUM [Concomitant]
     Active Substance: POTASSIUM
  20. PROCHLORPERAZINE [Concomitant]
  21. ROYAL MACA [Concomitant]
  22. VITAMIN B12 [Concomitant]
     Active Substance: CYANOCOBALAMIN
  23. VITAMIN D3 [Concomitant]
     Active Substance: CHOLECALCIFEROL

REACTIONS (2)
  - Ulcer haemorrhage [None]
  - Rash [None]

NARRATIVE: CASE EVENT DATE: 20230317
